FAERS Safety Report 4307545-3 (Version None)
Quarter: 2004Q1

REPORT INFORMATION
  Report Type: 
  Country: None (occurrence: None)
  Receive Date: 20040226
  Receipt Date: 20040211
  Transmission Date: 20041129
  Serious: Yes (Other)
  Sender: FDA-Public Use
  Company Number: L04-IND-00522-01

PATIENT
  Age: 13 Year
  Sex: Male

DRUGS (2)
  1. CITALOPRAM (CITALOPRAM HYDROBROMIDE) [Suspect]
     Indication: CONVULSION
     Dosage: 20 MG QD
  2. OXCARBAMAZEPINE [Concomitant]

REACTIONS (9)
  - ABNORMAL BEHAVIOUR [None]
  - ELECTROENCEPHALOGRAM ABNORMAL [None]
  - EUPHORIC MOOD [None]
  - MANIA [None]
  - MIDDLE INSOMNIA [None]
  - PSYCHOMOTOR HYPERACTIVITY [None]
  - RESTLESSNESS [None]
  - SELF ESTEEM INFLATED [None]
  - SPEECH DISORDER [None]
